FAERS Safety Report 16464426 (Version 3)
Quarter: 2020Q1

REPORT INFORMATION
  Report Type: Report from Study
  Country: ES (occurrence: ES)
  Receive Date: 20190621
  Receipt Date: 20200203
  Transmission Date: 20200409
  Serious: Yes (Hospitalization)
  Sender: FDA-Public Use
  Company Number: ES-ROCHE-2338757

PATIENT
  Age: 58 Year
  Sex: Male
  Weight: 83 kg

DRUGS (17)
  1. PREDNISONA [Concomitant]
     Active Substance: PREDNISONE
     Indication: NEUTROPHILIC DERMATOSIS
     Route: 048
     Dates: start: 20180422
  2. ROSUVASTATINA [ROSUVASTATIN] [Concomitant]
     Active Substance: ROSUVASTATIN
     Indication: HYPERCHOLESTEROLAEMIA
     Route: 048
     Dates: start: 20190213
  3. PREDNISONE. [Concomitant]
     Active Substance: PREDNISONE
     Route: 048
     Dates: start: 20190606, end: 20190618
  4. VALSARTAN. [Concomitant]
     Active Substance: VALSARTAN
     Indication: HYPERTENSION
     Route: 048
     Dates: start: 20171010
  5. SULFAMETHOXAZOLE/TRIMETHOPRIM [Concomitant]
     Active Substance: SULFAMETHOXAZOLE\TRIMETHOPRIM
     Indication: DIARRHOEA
     Route: 048
     Dates: start: 20190508
  6. TRAJENTA [Concomitant]
     Active Substance: LINAGLIPTIN
     Indication: DIABETES MELLITUS
     Route: 048
  7. PREDNISONE. [Concomitant]
     Active Substance: PREDNISONE
     Indication: DIARRHOEA
     Route: 048
     Dates: start: 20190511, end: 20190515
  8. TRIMETHOPRIM. [Concomitant]
     Active Substance: TRIMETHOPRIM
     Indication: DIARRHOEA
     Route: 048
     Dates: start: 20190508
  9. INSULIN [Concomitant]
     Active Substance: INSULIN NOS
     Indication: BLOOD GLUCOSE INCREASED
     Dosage: 14 U (UNIT)
     Route: 058
     Dates: start: 20190530
  10. PLACEBO [Suspect]
     Active Substance: UNSPECIFIED INGREDIENT
     Indication: MALIGNANT MELANOMA
     Dosage: DATE OF MOST RECENT DOSE OF PLACEBO PRIOR TO SAE ONSET: 25/APR/2019
     Route: 042
     Dates: start: 20170914
  11. LEVOFLOXACINO [LEVOFLOXACIN] [Concomitant]
     Active Substance: LEVOFLOXACIN
     Indication: NEUTROPHILIC DERMATOSIS
     Route: 048
     Dates: start: 20180328
  12. PREDNISONE. [Concomitant]
     Active Substance: PREDNISONE
     Indication: RENAL FAILURE
     Route: 048
     Dates: start: 20190516, end: 20190529
  13. PREDNISONE. [Concomitant]
     Active Substance: PREDNISONE
     Route: 048
     Dates: start: 20190530, end: 20190605
  14. VEMURAFENIB. [Suspect]
     Active Substance: VEMURAFENIB
     Indication: MALIGNANT MELANOMA
     Dosage: DATE OF MOST RECENT DOSE OF VEMURAFENIB PRIOR TO SAE ONSET: 12/JUN/2019 (4 TABLETS)
     Route: 048
     Dates: start: 20170818
  15. PHOSPHORIC ACID [Concomitant]
     Active Substance: PHOSPHORIC ACID
     Indication: BLOOD PHOSPHORUS
     Route: 048
     Dates: start: 20180607
  16. COBIMETINIB. [Suspect]
     Active Substance: COBIMETINIB
     Indication: MALIGNANT MELANOMA
     Dosage: DATE OF MOST RECENT DOSE OF COBIMETINIB PRIOR TO SAE ONSET: 06/JUN/2019 (40 MG)
     Route: 048
     Dates: start: 20170818
  17. PREDNISONE. [Concomitant]
     Active Substance: PREDNISONE
     Route: 048
     Dates: start: 20190530, end: 20190613

REACTIONS (1)
  - Renal failure [Recovered/Resolved]

NARRATIVE: CASE EVENT DATE: 20190614
